FAERS Safety Report 5601481-8 (Version None)
Quarter: 2008Q1

REPORT INFORMATION
  Report Type: 
  Country: None (occurrence: None)
  Receive Date: 20080124
  Receipt Date: 20080118
  Transmission Date: 20080703
  Serious: Yes (Other)
  Sender: FDA-Public Use
  Company Number: US-RANBAXY-2007US-09550

PATIENT

DRUGS (2)
  1. ISOTRETINOIN [Suspect]
     Indication: DRUG USE FOR UNKNOWN INDICATION
     Dosage: 20 MG, BID
     Route: 048
     Dates: start: 20070628, end: 20070701
  2. ISOTRETINOIN [Suspect]
     Dosage: 40 MG, BID ALTERNATE QD
     Route: 048
     Dates: start: 20070809, end: 20070817

REACTIONS (4)
  - ABORTION INDUCED [None]
  - HAEMATOCHEZIA [None]
  - PREGNANCY [None]
  - STOMACH DISCOMFORT [None]
